FAERS Safety Report 6789055-7 (Version None)
Quarter: 2010Q2

REPORT INFORMATION
  Report Type: 
  Country: None (occurrence: None)
  Receive Date: 20100623
  Receipt Date: 20080712
  Transmission Date: 20101027
  Serious: Yes (Other)
  Sender: FDA-Public Use
  Company Number: US-PFIZER INC-2008051056

PATIENT
  Sex: Female
  Weight: 33 kg

DRUGS (3)
  1. GENOTROPIN [Suspect]
     Indication: TURNER'S SYNDROME
     Dosage: SIX DAYS/WEEK
     Route: 058
     Dates: start: 20020101
  2. NASONEX [Concomitant]
  3. SYNTHROID [Concomitant]

REACTIONS (2)
  - EPIPHYSIOLYSIS [None]
  - PAIN [None]
